FAERS Safety Report 20834436 (Version 1)
Quarter: 2022Q2

REPORT INFORMATION
  Report Type: Spontaneous
  Country: US (occurrence: None)
  Receive Date: 20220513
  Receipt Date: 20220513
  Transmission Date: 20220720
  Serious: No
  Sender: FDA-Public Use
  Company Number: None

PATIENT
  Sex: Female

DRUGS (2)
  1. TERIPARATIDE [Suspect]
     Active Substance: TERIPARATIDE
     Indication: Senile osteoporosis
     Dosage: 20 MCG DAILY SUB
     Route: 058
     Dates: start: 202203
  2. TYMLOS [Suspect]
     Active Substance: ABALOPARATIDE

REACTIONS (3)
  - Injection site reaction [None]
  - Syncope [None]
  - Fatigue [None]
